FAERS Safety Report 4740834-7 (Version None)
Quarter: 2005Q3

REPORT INFORMATION
  Report Type: 
  Country: None (occurrence: None)
  Receive Date: 20050810
  Receipt Date: 20040928
  Transmission Date: 20060218
  Serious: No
  Sender: FDA-Public Use
  Company Number: US-GLAXOSMITHKLINE-A0527673A

PATIENT
  Age: 29 Year

DRUGS (1)
  1. TAGAMET HB 200 [Suspect]
     Dates: start: 20040928

REACTIONS (1)
  - SOMNOLENCE [None]
